FAERS Safety Report 13230411 (Version 2)
Quarter: 2017Q1

REPORT INFORMATION
  Report Type: Spontaneous
  Country: JP (occurrence: JP)
  Receive Date: 20170214
  Receipt Date: 20170222
  Transmission Date: 20170428
  Serious: Yes (Hospitalization)
  Sender: FDA-Public Use
  Company Number: JP-SA-2017SA023474

PATIENT
  Age: 79 Year
  Sex: Male
  Weight: 62 kg

DRUGS (1)
  1. IMMUCYST [Suspect]
     Active Substance: BACILLUS CALMETTE-GUERIN SUBSTRAIN CONNAUGHT LIVE ANTIGEN
     Indication: BLADDER CANCER
     Route: 043

REACTIONS (4)
  - Aortic aneurysm [Recovering/Resolving]
  - Haemoptysis [Recovered/Resolved]
  - Mycobacterial infection [Recovered/Resolved]
  - Vertebral artery occlusion [Recovered/Resolved]

NARRATIVE: CASE EVENT DATE: 201601
